FAERS Safety Report 10800182 (Version 1)
Quarter: 2015Q1

REPORT INFORMATION
  Report Type: Spontaneous
  Country: US (occurrence: US)
  Receive Date: 20150216
  Receipt Date: 20150216
  Transmission Date: 20150721
  Serious: No
  Sender: FDA-Public Use
  Company Number: US-ALLERGAN-1416680US

PATIENT
  Sex: Female

DRUGS (3)
  1. ESTRACE VAGINAL [Concomitant]
  2. LIQUID TEARS [Concomitant]
     Active Substance: CARBOXYMETHYLCELLULOSE
  3. RESTASIS [Suspect]
     Active Substance: CYCLOSPORINE
     Indication: DRY EYE
     Dosage: 2 GTT, BID
     Route: 047

REACTIONS (4)
  - Eye irritation [Unknown]
  - Lacrimation increased [Unknown]
  - Multiple use of single-use product [Unknown]
  - Therapeutic response unexpected [Unknown]
